FAERS Safety Report 5532541-8 (Version None)
Quarter: 2007Q4

REPORT INFORMATION
  Report Type: 
  Country: None (occurrence: None)
  Receive Date: 20071203
  Receipt Date: 20071127
  Transmission Date: 20080405
  Serious: No
  Sender: FDA-Public Use
  Company Number: US-BOEHRINGER INGELHEIM PHARMACEUTICALS, INC.-2007-BP-24307BP

PATIENT
  Sex: Male

DRUGS (14)
  1. SPIRIVA [Suspect]
     Indication: CHRONIC OBSTRUCTIVE PULMONARY DISEASE
     Dates: start: 20060301
  2. FLOVENT [Concomitant]
  3. ALBUTEROL [Concomitant]
  4. PRILOSEC [Concomitant]
  5. KALETRA [Concomitant]
  6. COMBIVIR [Concomitant]
     Dates: start: 20060501
  7. SINGULAIR [Concomitant]
  8. NYSTATIN [Concomitant]
     Indication: CANDIDIASIS
  9. METFORMIN HCL [Concomitant]
     Dates: end: 20070924
  10. FOLGARD OS [Concomitant]
     Indication: SUPPLEMENTATION THERAPY
  11. IRON SULFATETHIAMIN COMPOUND TAB [Concomitant]
  12. MULTI-VITAMIN [Concomitant]
  13. VITAMIN D3 [Concomitant]
  14. OSTEO MATRIX [Concomitant]

REACTIONS (1)
  - EYE PAIN [None]
